FAERS Safety Report 4328691-4 (Version None)
Quarter: 2004Q1

REPORT INFORMATION
  Report Type: 
  Country: None (occurrence: None)
  Receive Date: 20040329
  Receipt Date: 20040227
  Transmission Date: 20041129
  Serious: No
  Sender: FDA-Public Use
  Company Number: 04P-163-0246670-00

PATIENT
  Age: 58 Year
  Sex: Female
  Weight: 47.6277 kg

DRUGS (19)
  1. HUMIRA [Suspect]
     Indication: RHEUMATOID ARTHRITIS
     Dosage: 40 MG, 1 IN 2 WK, SUBCUTANEOUS
     Route: 058
     Dates: start: 20030301
  2. METHOTREXATE SODIUM [Concomitant]
  3. ONDANSETRON HCL [Concomitant]
  4. HYDROXYCHLOROQUINE [Concomitant]
  5. METHYLOPREDNISOLONE [Concomitant]
  6. TRAMADOL HCL [Concomitant]
  7. FOLTEX [Concomitant]
  8. METAXALONE [Concomitant]
  9. RISEDRONATE SODIUM [Concomitant]
  10. ESOMEPRAZOLE [Concomitant]
  11. SUCRALFATE [Concomitant]
  12. SUMATRIPTAN SUCCINATE [Concomitant]
  13. NADOLOL [Concomitant]
  14. AXOTAL [Concomitant]
  15. ESTRADIOL [Concomitant]
  16. ALLEGRA-D [Concomitant]
  17. GABAPENTIN [Concomitant]
  18. RALOXIFENE HCL [Concomitant]
  19. NYSTATIN [Concomitant]

REACTIONS (2)
  - CHRONIC SINUSITIS [None]
  - NAUSEA [None]
